FAERS Safety Report 12590269 (Version 1)
Quarter: 2016Q3

REPORT INFORMATION
  Report Type: Report from Study
  Country: US (occurrence: US)
  Receive Date: 20160725
  Receipt Date: 20160725
  Transmission Date: 20161109
  Serious: Yes (Hospitalization, Other)
  Sender: FDA-Public Use
  Company Number: US-ABBVIE-16K-163-1677179-00

PATIENT
  Age: 0 Day
  Sex: Female
  Weight: 3.48 kg

DRUGS (1)
  1. HUMIRA [Suspect]
     Active Substance: ADALIMUMAB
     Indication: MATERNAL EXPOSURE TIMING UNSPECIFIED
     Route: 064

REACTIONS (5)
  - Foetal exposure during pregnancy [Unknown]
  - Meconium aspiration syndrome [Unknown]
  - Meconium abnormal [Unknown]
  - Neonatal respiratory distress syndrome [Unknown]
  - Sepsis neonatal [Unknown]

NARRATIVE: CASE EVENT DATE: 20110101
